FAERS Safety Report 18572172 (Version 7)
Quarter: 2021Q2

REPORT INFORMATION
  Report Type: Spontaneous
  Country: BR (occurrence: BR)
  Receive Date: 20201203
  Receipt Date: 20210519
  Transmission Date: 20210717
  Serious: Yes (Other)
  Sender: FDA-Public Use
  Company Number: BR-CELLTRION INC.-2020BR033051

PATIENT

DRUGS (8)
  1. REMSIMA [Suspect]
     Active Substance: INFLIXIMAB
     Dosage: UNK
     Route: 042
     Dates: start: 20210305
  2. REMSIMA [Suspect]
     Active Substance: INFLIXIMAB
     Indication: PSORIATIC ARTHROPATHY
     Dosage: EVERY 2 MONTHS (START DATE: ABOUT 2 YEARS; STOP DATE: ABOUT 4 MONTHS)
     Route: 042
  3. RIVOTRIL [Concomitant]
     Active Substance: CLONAZEPAM
     Indication: SLEEP DISORDER
     Dosage: 4 TABLETS/DAY
     Route: 048
  4. VENLAFAXIN [Concomitant]
     Active Substance: VENLAFAXINE HYDROCHLORIDE
     Indication: DEPRESSION
     Dosage: UNK
     Route: 048
  5. FIOCRUZ VACCINE [Concomitant]
     Dosage: UNK
     Dates: start: 20210430
  6. EPINIL [CARBAMAZEPINE] [Concomitant]
     Indication: PRODUCT USED FOR UNKNOWN INDICATION
     Route: 048
  7. METHOTREXATE. [Concomitant]
     Active Substance: METHOTREXATE
     Indication: PRODUCT USED FOR UNKNOWN INDICATION
     Dosage: START DATE: ABOUT 30 YEARS AGO
     Route: 058
  8. PSOREX [Concomitant]
     Active Substance: CLOBETASOL PROPIONATE
     Indication: PSORIASIS

REACTIONS (12)
  - Headache [Recovered/Resolved]
  - Ear pain [Recovered/Resolved]
  - Arthralgia [Unknown]
  - Respiratory fatigue [Not Recovered/Not Resolved]
  - Eye infection [Unknown]
  - Fatigue [Not Recovered/Not Resolved]
  - Arthralgia [Recovered/Resolved]
  - Dyspnoea [Not Recovered/Not Resolved]
  - Intentional dose omission [Unknown]
  - COVID-19 [Unknown]
  - Pain [Unknown]
  - Asthenia [Not Recovered/Not Resolved]
